FAERS Safety Report 5401483-0 (Version None)
Quarter: 2007Q3

REPORT INFORMATION
  Report Type: 
  Country: None (occurrence: None)
  Receive Date: 20070731
  Receipt Date: 20060809
  Transmission Date: 20080115
  Serious: No
  Sender: FDA-Public Use
  Company Number: A0616011A

PATIENT
  Sex: Male

DRUGS (1)
  1. DYAZIDE [Suspect]
     Indication: DRUG USE FOR UNKNOWN INDICATION
     Route: 065

REACTIONS (3)
  - ABDOMINAL PAIN [None]
  - NAUSEA [None]
  - RASH [None]
